FAERS Safety Report 7086199-X (Version None)
Quarter: 2010Q4

REPORT INFORMATION
  Report Type: 
  Country: None (occurrence: None)
  Receive Date: 20101105
  Receipt Date: 20101025
  Transmission Date: 20110411
  Serious: No
  Sender: FDA-Public Use
  Company Number: DE-ELI_LILLY_AND_COMPANY-DE201010005787

PATIENT
  Age: 57 Year
  Sex: Female

DRUGS (5)
  1. CYMBALTA [Suspect]
     Indication: DEPRESSION
     Dosage: 60 MG, UNK
     Route: 048
     Dates: start: 20100723
  2. LEVOTHYROXINE SODIUM [Concomitant]
  3. UTROGEST [Concomitant]
  4. CORTISON [Concomitant]
  5. OESTROGEN [Concomitant]

REACTIONS (1)
  - HEPATIC ENZYME INCREASED [None]
